FAERS Safety Report 12272011 (Version 1)
Quarter: 2016Q2

REPORT INFORMATION
  Report Type: Spontaneous
  Country: US (occurrence: US)
  Receive Date: 20160415
  Receipt Date: 20160415
  Transmission Date: 20160815
  Serious: No
  Sender: FDA-Public Use
  Company Number: US-FERRINGPH-2015FE02492

PATIENT
  Age: 66 Year
  Sex: Male
  Weight: 68.93 kg

DRUGS (3)
  1. VITAMINS NOS [Concomitant]
     Active Substance: VITAMINS
  2. FIRMAGON [Suspect]
     Active Substance: DEGARELIX ACETATE
     Indication: PROSTATE CANCER
     Dosage: 240 MG, ONCE/SINGLE LOADING DOSE
     Route: 058
     Dates: start: 20150102, end: 20150102
  3. FIRMAGON [Suspect]
     Active Substance: DEGARELIX ACETATE
     Dosage: 80 MG, MONTHLY MAINTENANCE DOSE
     Route: 058

REACTIONS (4)
  - Musculoskeletal stiffness [Not Recovered/Not Resolved]
  - Injection site swelling [Recovered/Resolved]
  - Pain in extremity [Not Recovered/Not Resolved]
  - Injection site pain [Recovered/Resolved]

NARRATIVE: CASE EVENT DATE: 20150710
